FAERS Safety Report 10034292 (Version 1)
Quarter: 2014Q1

REPORT INFORMATION
  Report Type: Spontaneous
  Country: US (occurrence: US)
  Receive Date: 20140325
  Receipt Date: 20140325
  Transmission Date: 20141002
  Serious: Yes (Death)
  Sender: FDA-Public Use
  Company Number: US-ROCHE-1370603

PATIENT
  Age: 55 Year
  Sex: Male

DRUGS (12)
  1. DIAZEPAM [Suspect]
     Indication: PRODUCT USED FOR UNKNOWN INDICATION
     Route: 048
  2. DIAZEPAM [Suspect]
     Route: 048
  3. ACETAMINOPHEN/HYDROCODONE [Suspect]
     Indication: PRODUCT USED FOR UNKNOWN INDICATION
     Route: 048
  4. ACETAMINOPHEN/HYDROCODONE [Suspect]
     Route: 048
  5. PHENOBARBITAL [Suspect]
     Indication: PRODUCT USED FOR UNKNOWN INDICATION
     Route: 048
  6. PHENOBARBITAL [Suspect]
     Route: 048
  7. ETHANOL [Suspect]
     Indication: PRODUCT USED FOR UNKNOWN INDICATION
     Route: 048
  8. ETHANOL [Suspect]
     Route: 048
  9. METHADONE [Suspect]
     Indication: PRODUCT USED FOR UNKNOWN INDICATION
     Route: 048
  10. METHADONE [Suspect]
     Route: 048
  11. BELLADONNA ALKALOIDS [Suspect]
     Indication: PRODUCT USED FOR UNKNOWN INDICATION
     Route: 048
  12. BELLADONNA ALKALOIDS [Suspect]
     Route: 048

REACTIONS (1)
  - Toxicity to various agents [Fatal]
